FAERS Safety Report 4365134-9 (Version None)
Quarter: 2004Q2

REPORT INFORMATION
  Report Type: 
  Country: None (occurrence: None)
  Receive Date: 20040520
  Receipt Date: 20040506
  Transmission Date: 20050107
  Serious: No
  Sender: FDA-Public Use
  Company Number: 206358

PATIENT
  Age: 77 Year
  Sex: Male

DRUGS (4)
  1. AVASTIN [Suspect]
     Indication: COLON CANCER
     Dosage: 350 MG, INTRAVENOUS
     Route: 042
     Dates: start: 20040422, end: 20040506
  2. COUMADIN [Concomitant]
  3. ZESTRIL [Concomitant]
  4. LANOXIN [Concomitant]

REACTIONS (2)
  - INTERNATIONAL NORMALISED RATIO INCREASED [None]
  - PROTHROMBIN TIME PROLONGED [None]
